FAERS Safety Report 9887112 (Version 1)
Quarter: 2014Q1

REPORT INFORMATION
  Report Type: Spontaneous
  Country: US (occurrence: US)
  Receive Date: 20140211
  Receipt Date: 20140211
  Transmission Date: 20141002
  Serious: No
  Sender: FDA-Public Use
  Company Number: US-BIOGENIDEC-2014BI013035

PATIENT
  Age: 81 Year
  Sex: Male

DRUGS (8)
  1. AVONEX [Suspect]
     Indication: MULTIPLE SCLEROSIS
     Route: 030
  2. AMLODIPINE BESY-BENAZEPRIL HCL [Concomitant]
  3. ASPIRIN [Concomitant]
  4. ATORVASTATIN CALCIUM [Concomitant]
  5. AVODART [Concomitant]
  6. METOPROLOL SUCCINATE ER [Concomitant]
  7. MULTIVITAL [Concomitant]
  8. VITAMIN D [Concomitant]

REACTIONS (2)
  - Injection site swelling [Unknown]
  - Adverse event [Unknown]
